FAERS Safety Report 5382375-2 (Version None)
Quarter: 2007Q3

REPORT INFORMATION
  Report Type: 
  Country: None (occurrence: None)
  Receive Date: 20070709
  Receipt Date: 20070627
  Transmission Date: 20080115
  Serious: Yes (Hospitalization, Other)
  Sender: FDA-Public Use
  Company Number: DE-SHR-DE-2006-005164

PATIENT
  Age: 32 Year
  Sex: Female

DRUGS (1)
  1. MIRENA [Suspect]
     Dosage: 20 A?G/DAY, CONT
     Route: 015
     Dates: start: 20050801

REACTIONS (4)
  - AMENORRHOEA [None]
  - GENITAL HAEMORRHAGE [None]
  - IUCD COMPLICATION [None]
  - PULMONARY EMBOLISM [None]
